FAERS Safety Report 4473880-1 (Version None)
Quarter: 2004Q4

REPORT INFORMATION
  Report Type: 
  Country: None (occurrence: None)
  Receive Date: 20041008
  Receipt Date: 20041008
  Transmission Date: 20050328
  Serious: Yes (Life-Threatening, Hospitalization)
  Sender: FDA-Public Use
  Company Number: None

PATIENT
  Age: 55 Year
  Sex: Male
  Weight: 86.8 kg

DRUGS (2)
  1. SIMVASTATIN [Suspect]
     Indication: HYPERLIPIDAEMIA
     Dosage: 80 MG DAILY
     Dates: start: 20040727, end: 20040727
  2. NELFINAVIR 625MG [Suspect]
     Indication: HIV INFECTION
     Dosage: 1250MG BID

REACTIONS (1)
  - RHABDOMYOLYSIS [None]
